FAERS Safety Report 9132744 (Version 3)
Quarter: 2013Q1

REPORT INFORMATION
  Report Type: Spontaneous
  Country: US (occurrence: US)
  Receive Date: 20130301
  Receipt Date: 20130321
  Transmission Date: 20140127
  Serious: Yes (Hospitalization, Other)
  Sender: FDA-Public Use
  Company Number: US-PFIZER INC-2013070800

PATIENT
  Age: 51 Year
  Sex: Female
  Weight: 91 kg

DRUGS (11)
  1. LYRICA [Suspect]
     Indication: FIBROMYALGIA
     Dosage: 150 MG/DAY
     Dates: start: 2012, end: 20130225
  2. LYRICA [Suspect]
     Indication: NEUROPATHY PERIPHERAL
  3. LYRICA [Suspect]
     Indication: PLANTAR FASCIAL FIBROMATOSIS
  4. XANAX [Concomitant]
     Indication: ANXIETY
     Dosage: 1 MG, 3X/DAY
  5. CYMBALTA [Concomitant]
     Indication: DEPRESSION
     Dosage: 60 MG/DAY
  6. CYMBALTA [Concomitant]
     Indication: FIBROMYALGIA
  7. HYDROCODONE/ACETAMINOPHEN [Concomitant]
     Indication: FIBROMYALGIA
     Dosage: 7.5MG/325MG
  8. HYDROCODONE/ACETAMINOPHEN [Concomitant]
     Indication: NEUROPATHY PERIPHERAL
  9. HYDROCODONE/ACETAMINOPHEN [Concomitant]
     Indication: PLANTAR FASCIAL FIBROMATOSIS
  10. HYDROCODONE/ACETAMINOPHEN [Concomitant]
     Indication: MIGRAINE
  11. TYLENOL PM [Concomitant]
     Dosage: UNK

REACTIONS (12)
  - Kidney infection [Not Recovered/Not Resolved]
  - Weight increased [Not Recovered/Not Resolved]
  - Hunger [Not Recovered/Not Resolved]
  - Pain [Not Recovered/Not Resolved]
  - Withdrawal syndrome [Not Recovered/Not Resolved]
  - Abdominal discomfort [Not Recovered/Not Resolved]
  - Diarrhoea [Not Recovered/Not Resolved]
  - Abdominal pain upper [Not Recovered/Not Resolved]
  - Nausea [Not Recovered/Not Resolved]
  - Insomnia [Not Recovered/Not Resolved]
  - Feeling abnormal [Not Recovered/Not Resolved]
  - Fear [Not Recovered/Not Resolved]
